FAERS Safety Report 5704668-9 (Version None)
Quarter: 2008Q2

REPORT INFORMATION
  Report Type: 
  Country: None (occurrence: None)
  Receive Date: 20080414
  Receipt Date: 20080405
  Transmission Date: 20081010
  Serious: Yes (Disabling)
  Sender: FDA-Public Use
  Company Number: BR-AVENTIS-200813132GDDC

PATIENT
  Age: 9 Year
  Sex: Female
  Weight: 26 kg

DRUGS (3)
  1. LANTUS [Suspect]
     Route: 058
     Dates: start: 20070801
  2. LANTUS [Suspect]
     Route: 058
     Dates: start: 20080320
  3. INSULIN LISPRO [Concomitant]
     Route: 058
     Dates: start: 20020101

REACTIONS (2)
  - ARTHRALGIA [None]
  - BLOOD GLUCOSE FLUCTUATION [None]
